FAERS Safety Report 8358811-6 (Version None)
Quarter: 2012Q2

REPORT INFORMATION
  Report Type: 
  Country: None (occurrence: None)
  Receive Date: 20120514
  Receipt Date: 20120501
  Transmission Date: 20120825
  Serious: Yes (Life-Threatening, Hospitalization, Other)
  Sender: FDA-Public Use
  Company Number: -MYLANLABS-2009AC000242

PATIENT
  Sex: Female
  Weight: 57.61 kg

DRUGS (52)
  1. NYSTATIN [Concomitant]
  2. MONOPRIL [Concomitant]
  3. PREMARIN [Concomitant]
  4. PROVERA [Concomitant]
  5. HUMALOG [Concomitant]
  6. MORPHINE [Concomitant]
  7. REGLAN [Concomitant]
  8. ANTIBIOTICS [Concomitant]
  9. MAGNESIUM OXIDE [Concomitant]
  10. PLAVIX [Concomitant]
  11. MEXILETINE HYDROCHLORIDE [Concomitant]
  12. LASIX [Concomitant]
  13. ALTACE [Concomitant]
  14. ALDACTONE [Concomitant]
  15. ASPIRIN [Concomitant]
  16. PERCOCET [Concomitant]
  17. NOVOLOG [Concomitant]
     Dosage: 15 UNITS TID BEFORE MEALS
  18. FLAGYL [Concomitant]
     Dosage: FIVE MORE DAYS
  19. RAMIPRIL [Concomitant]
  20. LIPITOR [Concomitant]
  21. LOMOTIL [Concomitant]
  22. PRILOSEC [Concomitant]
  23. SODIUM NITROPRUSSIDE [Concomitant]
     Route: 042
  24. DARVOCET [Concomitant]
  25. LEVAQUIN [Concomitant]
     Dosage: FIVE MORE DAYS
  26. MICRONASE [Concomitant]
  27. DIGOXIN [Suspect]
     Indication: CARDIAC FAILURE CONGESTIVE
     Route: 048
     Dates: start: 19980711, end: 20090627
  28. HUMULIN R [Concomitant]
  29. POTASSIUM CHLORIDE [Concomitant]
     Dosage: FOR ONE WEEK
  30. ACETAMINOPHEN W/ PROPOXYPHENE HCL [Concomitant]
  31. VANCOMYCIN [Concomitant]
     Route: 042
  32. ZANTAC [Concomitant]
  33. PERSANTINE [Concomitant]
  34. AMINOPHYLLINE [Concomitant]
  35. MAGNESIUM [Concomitant]
     Route: 042
  36. COREG [Concomitant]
  37. LANTUS [Concomitant]
     Dosage: SLIDING SCALE
  38. PANTOPRAZOLE [Concomitant]
  39. GLYBURIDE [Concomitant]
  40. PIPERACILLIN [Concomitant]
  41. KEFZOL [Concomitant]
  42. REZULIN [Concomitant]
  43. KAYEXALATE [Concomitant]
  44. PROZAC [Concomitant]
  45. SUCRALFATE [Concomitant]
  46. SODIUM CHLORIDE [Concomitant]
  47. TYLENOL (CAPLET) [Concomitant]
  48. LOVAZA [Concomitant]
  49. PREMPRO [Concomitant]
     Dosage: 0.625 TO 2.5 QD
  50. VITAMIN TAB [Concomitant]
  51. MUCOMYST [Concomitant]
  52. AVANDAMET [Concomitant]
     Dosage: 2/500

REACTIONS (97)
  - COLD SWEAT [None]
  - EJECTION FRACTION DECREASED [None]
  - DISEASE PROGRESSION [None]
  - DEPRESSION [None]
  - HYPERTENSION [None]
  - NECK PAIN [None]
  - QRS AXIS ABNORMAL [None]
  - SPEECH DISORDER [None]
  - TENSION HEADACHE [None]
  - CARDIAC MURMUR [None]
  - DISEASE RECURRENCE [None]
  - APHASIA [None]
  - BLOOD POTASSIUM ABNORMAL [None]
  - BLOOD SODIUM DECREASED [None]
  - GASTRITIS [None]
  - HYPERKALAEMIA [None]
  - PULMONARY VASCULAR RESISTANCE ABNORMALITY [None]
  - HYPOREFLEXIA [None]
  - LEFT VENTRICULAR DYSFUNCTION [None]
  - CHEST DISCOMFORT [None]
  - DEHYDRATION [None]
  - VOMITING [None]
  - SYNCOPE [None]
  - IMPLANTABLE DEFIBRILLATOR INSERTION [None]
  - DEVICE RELATED INFECTION [None]
  - HYPOTENSION [None]
  - VENTRICULAR FIBRILLATION [None]
  - BLOOD MAGNESIUM ABNORMAL [None]
  - CAROTID ARTERY STENOSIS [None]
  - CHEST PAIN [None]
  - DEVICE MALFUNCTION [None]
  - EXOSTOSIS [None]
  - HYPOKINESIA [None]
  - MENTAL STATUS CHANGES [None]
  - MUSCULOSKELETAL PAIN [None]
  - NEUROPATHY PERIPHERAL [None]
  - VISUAL IMPAIRMENT [None]
  - CARDIOMYOPATHY [None]
  - ABDOMINAL PAIN UPPER [None]
  - NAUSEA [None]
  - PULMONARY HYPERTENSION [None]
  - TYPE 2 DIABETES MELLITUS [None]
  - ELECTROCARDIOGRAM QT PROLONGED [None]
  - BACK PAIN [None]
  - BLOOD GLUCOSE ABNORMAL [None]
  - CARDIOMEGALY [None]
  - GASTROOESOPHAGEAL REFLUX DISEASE [None]
  - HYPERCHOLESTEROLAEMIA [None]
  - HYPOKALAEMIA [None]
  - INFECTION [None]
  - MENTAL IMPAIRMENT [None]
  - VENTRICULAR EXTRASYSTOLES [None]
  - WEIGHT DECREASED [None]
  - HEART RATE IRREGULAR [None]
  - MYOCARDIAL INFARCTION [None]
  - CATHETERISATION CARDIAC [None]
  - FATIGUE [None]
  - DECREASED APPETITE [None]
  - CHOLELITHIASIS [None]
  - MUSCULAR WEAKNESS [None]
  - SPINAL OSTEOARTHRITIS [None]
  - WHITE BLOOD CELL COUNT ABNORMAL [None]
  - DIZZINESS [None]
  - DYSPNOEA EXERTIONAL [None]
  - DIARRHOEA [None]
  - GASTROENTERITIS [None]
  - AGITATION [None]
  - BUNDLE BRANCH BLOCK LEFT [None]
  - CARDIAC PACEMAKER BATTERY REPLACEMENT [None]
  - DYSPNOEA PAROXYSMAL NOCTURNAL [None]
  - ELECTROCARDIOGRAM REPOLARISATION ABNORMALITY [None]
  - ELECTROCARDIOGRAM ST SEGMENT ELEVATION [None]
  - DEVICE STIMULATION ISSUE [None]
  - RALES [None]
  - RESTLESS LEGS SYNDROME [None]
  - SCAN MYOCARDIAL PERFUSION ABNORMAL [None]
  - NOCTURIA [None]
  - DYSPNOEA [None]
  - CONGESTIVE CARDIOMYOPATHY [None]
  - ANXIETY [None]
  - LEUKOCYTOSIS [None]
  - DISORIENTATION [None]
  - MITRAL VALVE INCOMPETENCE [None]
  - BLOOD PRESSURE DECREASED [None]
  - VENTRICULAR TACHYCARDIA [None]
  - CARDIAC FAILURE CONGESTIVE [None]
  - TORSADE DE POINTES [None]
  - CARDIAC DISORDER [None]
  - COGNITIVE DISORDER [None]
  - CONDUCTION DISORDER [None]
  - ELECTROCARDIOGRAM ABNORMAL [None]
  - GASTROINTESTINAL SOUNDS ABNORMAL [None]
  - HEART SOUNDS ABNORMAL [None]
  - HYPERLIPIDAEMIA [None]
  - HYPERTENSIVE HEART DISEASE [None]
  - HYPOMAGNESAEMIA [None]
  - PYREXIA [None]
